FAERS Safety Report 20035429 (Version 1)
Quarter: 2021Q4

REPORT INFORMATION
  Report Type: Spontaneous
  Country: US (occurrence: US)
  Receive Date: 20211104
  Receipt Date: 20211104
  Transmission Date: 20220303
  Serious: No
  Sender: FDA-Public Use
  Company Number: US-NOVOPROD-780190

PATIENT
  Age: 64 Year
  Sex: Female

DRUGS (1)
  1. FIASP [Suspect]
     Active Substance: INSULIN ASPART
     Indication: Product used for unknown indication
     Dosage: UNK
     Route: 065

REACTIONS (4)
  - Musculoskeletal stiffness [Recovered/Resolved]
  - Blood glucose increased [Recovered/Resolved]
  - Device failure [Recovered/Resolved]
  - Drug-device incompatibility [Recovered/Resolved]

NARRATIVE: CASE EVENT DATE: 20201231
